FAERS Safety Report 18268365 (Version 1)
Quarter: 2020Q3

REPORT INFORMATION
  Report Type: Spontaneous
  Country: US (occurrence: US)
  Receive Date: 20200915
  Receipt Date: 20200915
  Transmission Date: 20201103
  Serious: Yes (Other)
  Sender: FDA-Public Use
  Company Number: US-MACLEODS PHARMACEUTICALS US LTD-MAC2020027994

PATIENT

DRUGS (1)
  1. ZIPRASIDONE 20 MG [Suspect]
     Active Substance: ZIPRASIDONE
     Indication: MANIA
     Dosage: 20 MILLIGRAM, SINGLE, PARENTERAL
     Route: 030

REACTIONS (1)
  - Spasmodic dysphonia [Recovered/Resolved]
